FAERS Safety Report 19743416 (Version 1)
Quarter: 2021Q3

REPORT INFORMATION
  Report Type: Spontaneous
  Country: DE (occurrence: DE)
  Receive Date: 20210824
  Receipt Date: 20210824
  Transmission Date: 20211014
  Serious: Yes (Other)
  Sender: FDA-Public Use
  Company Number: DE-UCBSA-2021039347

PATIENT
  Sex: Female

DRUGS (1)
  1. VIMPAT [Suspect]
     Active Substance: LACOSAMIDE
     Indication: PRODUCT USED FOR UNKNOWN INDICATION
     Dosage: 100 MILLIGRAM, 2X/DAY (BID)
     Dates: start: 202102

REACTIONS (10)
  - Weight decreased [Unknown]
  - Hyperhidrosis [Unknown]
  - Lymphadenopathy [Unknown]
  - Peripheral swelling [Unknown]
  - Insomnia [Unknown]
  - Headache [Unknown]
  - Dizziness [Unknown]
  - Blood test abnormal [Unknown]
  - Feeling cold [Unknown]
  - Diarrhoea [Unknown]

NARRATIVE: CASE EVENT DATE: 2021
